FAERS Safety Report 20794872 (Version 1)
Quarter: 2022Q2

REPORT INFORMATION
  Report Type: Spontaneous
  Country: LT (occurrence: LT)
  Receive Date: 20220506
  Receipt Date: 20220506
  Transmission Date: 20220721
  Serious: Yes (Death, Hospitalization, Other)
  Sender: FDA-Public Use
  Company Number: None

PATIENT
  Age: 61 Year
  Sex: Female

DRUGS (5)
  1. VANCOMYCIN [Suspect]
     Active Substance: VANCOMYCIN
     Indication: Meningitis staphylococcal
     Dosage: UNK
     Route: 042
     Dates: start: 20180628, end: 20180710
  2. MEROPENEM [Suspect]
     Active Substance: MEROPENEM
     Indication: Infection
     Dosage: UNK
     Route: 042
     Dates: start: 20180704, end: 20180710
  3. CEFTRIAXONE [Suspect]
     Active Substance: CEFTRIAXONE
     Indication: Leukocyturia
     Dosage: UNK
     Route: 042
     Dates: start: 20180627, end: 20180704
  4. CEFUROXIME [Suspect]
     Active Substance: CEFUROXIME
     Indication: Leukocyturia
     Dosage: UNK
     Route: 042
  5. METFORMIN [Concomitant]
     Active Substance: METFORMIN HYDROCHLORIDE
     Indication: Type 2 diabetes mellitus
     Dosage: UNK
     Route: 065

REACTIONS (2)
  - Endocarditis [Unknown]
  - Drug ineffective [Fatal]

NARRATIVE: CASE EVENT DATE: 20180628
